FAERS Safety Report 6257634-1 (Version None)
Quarter: 2009Q3

REPORT INFORMATION
  Report Type: 
  Country: None (occurrence: None)
  Receive Date: 20090702
  Receipt Date: 20090623
  Transmission Date: 20100115
  Serious: Yes (Death, Disabling)
  Sender: FDA-Public Use
  Company Number: OSCN-NO-0906S-0315

PATIENT
  Age: 63 Year
  Sex: Female

DRUGS (1)
  1. OMNISCAN [Suspect]
     Indication: DRUG USE FOR UNKNOWN INDICATION
     Dosage: 10 ML, SINGLE DOSE, I.V.
     Route: 042
     Dates: start: 19990414, end: 19990414

REACTIONS (10)
  - ASTHENIA [None]
  - DYSPEPSIA [None]
  - GOUT [None]
  - HAEMODIALYSIS [None]
  - HYPOAESTHESIA [None]
  - IMMOBILE [None]
  - MUSCLE CONTRACTIONS INVOLUNTARY [None]
  - NEPHROGENIC SYSTEMIC FIBROSIS [None]
  - OEDEMA PERIPHERAL [None]
  - SENSORY DISTURBANCE [None]
